FAERS Safety Report 9071818 (Version 1)
Quarter: 2013Q1

REPORT INFORMATION
  Report Type: Spontaneous
  Country: FR (occurrence: FR)
  Receive Date: 20130129
  Receipt Date: 20130129
  Transmission Date: 20140127
  Serious: Yes (Other)
  Sender: FDA-Public Use
  Company Number: FR-ROCHE-1183554

PATIENT
  Age: 61 None
  Sex: Male

DRUGS (13)
  1. MIRCERA [Suspect]
     Indication: ANAEMIA
     Route: 042
     Dates: start: 20121006, end: 20121006
  2. MIRCERA [Suspect]
     Route: 065
     Dates: start: 20111228
  3. NEORECORMON [Concomitant]
  4. CARDENSIEL [Concomitant]
     Route: 065
  5. COVERAM [Concomitant]
     Dosage: 10/10 MG
     Route: 065
  6. HYPERIUM [Concomitant]
     Route: 065
  7. SEROPLEX [Concomitant]
     Route: 065
  8. IMOVANE [Concomitant]
  9. EMLA [Concomitant]
  10. TAHOR [Concomitant]
     Route: 065
  11. UVEDOSE [Concomitant]
     Dosage: 1 AMPOULE
     Route: 065
  12. RENVELA [Concomitant]
  13. KAYEXALATE [Concomitant]

REACTIONS (1)
  - Purpura [Not Recovered/Not Resolved]
